FAERS Safety Report 9596796 (Version 2)
Quarter: 2015Q2

REPORT INFORMATION
  Report Type: Spontaneous
  Country: GB (occurrence: GB)
  Receive Date: 20131004
  Receipt Date: 20150512
  Transmission Date: 20150821
  Serious: Yes (Hospitalization)
  Sender: FDA-Public Use
  Company Number: PHHY2013GB110100

PATIENT
  Age: 79 Year
  Sex: Female

DRUGS (1)
  1. DONEPEZIL [Suspect]
     Active Substance: DONEPEZIL
     Indication: DEMENTIA WITH LEWY BODIES
     Dosage: 15 MG, QD ( RANGING FROM 2.5 TO 15 MG DAILY)
     Route: 065

REACTIONS (5)
  - Fall [Unknown]
  - Hip fracture [Unknown]
  - Drooling [Unknown]
  - Depression [Unknown]
  - Confusional state [Unknown]
